FAERS Safety Report 6252278-X (Version None)
Quarter: 2009Q3

REPORT INFORMATION
  Report Type: 
  Country: None (occurrence: None)
  Receive Date: 20090701
  Receipt Date: 20090618
  Transmission Date: 20100115
  Serious: Yes (Hospitalization)
  Sender: FDA-Public Use
  Company Number: NL-ASTRAZENECA-2009SE02987

PATIENT
  Age: 22881 Day
  Sex: Male
  Weight: 70 kg

DRUGS (1)
  1. OMEPRAZOL [Suspect]
     Indication: DYSPEPSIA
     Route: 048
     Dates: start: 20070106, end: 20081210

REACTIONS (2)
  - HYPOMAGNESAEMIA [None]
  - TETANY [None]
